FAERS Safety Report 13661675 (Version 2)
Quarter: 2017Q3

REPORT INFORMATION
  Report Type: Spontaneous
  Country: DE (occurrence: DE)
  Receive Date: 20170616
  Receipt Date: 20170816
  Transmission Date: 20171127
  Serious: Yes (Other)
  Sender: FDA-Public Use
  Company Number: DE-SA-2017SA107934

PATIENT
  Age: 56 Year
  Sex: Female
  Weight: 74 kg

DRUGS (11)
  1. ALIROCUMAB PREFILLED PEN [Suspect]
     Active Substance: ALIROCUMAB
     Indication: TYPE IIA HYPERLIPIDAEMIA
  2. PRAVASTATIN. [Concomitant]
     Active Substance: PRAVASTATIN
     Dosage: DOSE: 1/2; CT 10MG ?TABL TAB N3 100 ST
     Route: 065
  3. PRALUENT [Suspect]
     Active Substance: ALIROCUMAB
     Indication: TYPE IIA HYPERLIPIDAEMIA
     Route: 058
     Dates: start: 201604
  4. VITAMIN D3 [Concomitant]
     Active Substance: CHOLECALCIFEROL
     Dosage: HEVERT TAB N3 10
     Route: 065
  5. CLOPIDOGREL [Concomitant]
     Active Substance: CLOPIDOGREL BISULFATE
     Dosage: ZENTIVA 75MG ?FTA 100 ST N3
     Route: 065
  6. CONCOR COR [Concomitant]
     Active Substance: BISOPROLOL FUMARATE
     Dosage: DOSE: 1/2; 2.5MG FTA 100 ST
     Route: 065
  7. PRALUENT [Suspect]
     Active Substance: ALIROCUMAB
     Indication: TYPE IIA HYPERLIPIDAEMIA
     Route: 058
  8. PANTOPRAZOLE [Concomitant]
     Active Substance: PANTOPRAZOLE
     Dosage: 1A PHARMA ?40MG TMR N3 100 ST
     Route: 065
  9. DEXA-RHINOSPRAY N [Concomitant]
     Route: 065
  10. METFORMIN [Concomitant]
     Active Substance: METFORMIN HYDROCHLORIDE
     Dosage: STADA 500MG ?FTA N3 180 ST
     Route: 065
  11. ALIROCUMAB PREFILLED PEN [Suspect]
     Active Substance: ALIROCUMAB
     Indication: TYPE IIA HYPERLIPIDAEMIA
     Dates: start: 201604

REACTIONS (9)
  - Pancreatitis [Recovering/Resolving]
  - Glycosylated haemoglobin increased [Unknown]
  - Abdominal discomfort [Recovering/Resolving]
  - Blood cholesterol increased [Unknown]
  - Amylase increased [Recovering/Resolving]
  - Blood lactate dehydrogenase increased [Unknown]
  - High density lipoprotein increased [Recovering/Resolving]
  - Low density lipoprotein increased [Unknown]
  - Lipase increased [Recovering/Resolving]

NARRATIVE: CASE EVENT DATE: 20160520
